FAERS Safety Report 21643128 (Version 1)
Quarter: 2022Q4

REPORT INFORMATION
  Report Type: Spontaneous
  Country: JP (occurrence: None)
  Receive Date: 20221125
  Receipt Date: 20221125
  Transmission Date: 20230113
  Serious: Yes (Other)
  Sender: FDA-Public Use
  Company Number: JP-Orion Corporation ORION PHARMA-ENTC2022-0232

PATIENT
  Age: 79 Year
  Sex: Male

DRUGS (3)
  1. STALEVO [Suspect]
     Active Substance: CARBIDOPA\ENTACAPONE\LEVODOPA
     Indication: Product used for unknown indication
     Dosage: STRENGTH: LEVODOPA-100 MG, CARBIDOPA-UNKNOWN, ENTACAPONE-100 MG?ON AWAKENING, AFTER EACH MEAL
     Route: 048
  2. STALEVO [Suspect]
     Active Substance: CARBIDOPA\ENTACAPONE\LEVODOPA
     Dosage: STRENGTH: LEVODOPA-100 MG, CARBIDOPA-UNKNOWN, ENTACAPONE-100 MG?AFTER EACH MEAL
     Route: 048
  3. COMTAN [Suspect]
     Active Substance: ENTACAPONE
     Indication: Product used for unknown indication
     Dosage: AFTER EACH MEAL AND BEFORE BEDTIME
     Route: 048

REACTIONS (1)
  - Dysphagia [Unknown]
